FAERS Safety Report 6887926-4 (Version None)
Quarter: 2010Q3

REPORT INFORMATION
  Report Type: 
  Country: None (occurrence: None)
  Receive Date: 20100730
  Receipt Date: 20100720
  Transmission Date: 20110219
  Serious: Yes (Hospitalization)
  Sender: FDA-Public Use
  Company Number: A0785674A

PATIENT
  Age: 56 Year
  Sex: Female
  Weight: 118.2 kg

DRUGS (9)
  1. AVANDIA [Suspect]
     Dosage: 8MG PER DAY
     Route: 048
     Dates: start: 20000601, end: 20040322
  2. HUMALOG [Concomitant]
  3. LANTUS [Concomitant]
  4. SIMVASTATIN [Concomitant]
  5. ALTACE [Concomitant]
  6. ATENOLOL [Concomitant]
  7. NORTRIPTYLINE [Concomitant]
  8. ZOLOFT [Concomitant]
  9. AMBIEN [Concomitant]

REACTIONS (2)
  - CORONARY ARTERY DISEASE [None]
  - MYOCARDIAL INFARCTION [None]
